FAERS Safety Report 4492429-0 (Version None)
Quarter: 2004Q4

REPORT INFORMATION
  Report Type: 
  Country: None (occurrence: None)
  Receive Date: 20041103
  Receipt Date: 20041103
  Transmission Date: 20050328
  Serious: Yes (Hospitalization)
  Sender: FDA-Public Use
  Company Number: None

PATIENT
  Age: 74 Year
  Sex: Male
  Weight: 95.5 kg

DRUGS (1)
  1. ASPIRIN [Suspect]
     Indication: ACUTE CORONARY SYNDROME
     Dosage: 81MG  4 TABS ONCE  ORAL
     Route: 048
     Dates: start: 20040802, end: 20040802

REACTIONS (7)
  - ACUTE CORONARY SYNDROME [None]
  - CARDIAC VENTRICULAR DISORDER [None]
  - CHEST DISCOMFORT [None]
  - CORONARY ARTERY DISEASE [None]
  - DRUG HYPERSENSITIVITY [None]
  - LIMB DISCOMFORT [None]
  - POST PROCEDURAL HAEMORRHAGE [None]
